FAERS Safety Report 18915960 (Version 3)
Quarter: 2021Q3

REPORT INFORMATION
  Report Type: Report from Study
  Country: None (occurrence: NL)
  Receive Date: 20210218
  Receipt Date: 20210818
  Transmission Date: 20211014
  Serious: No
  Sender: FDA-Public Use
  Company Number: NL-ABBVIE-19S-114-2765244-00

PATIENT
  Sex: Female

DRUGS (4)
  1. DUODOPA [Suspect]
     Active Substance: CARBIDOPA\LEVODOPA
     Indication: PARKINSON^S DISEASE
     Dosage: MD 8.0 ML; CD 2.2 ML/H; ED 1.0 ML
     Route: 050
     Dates: start: 20180924
  2. CARBAMAZEPINE. [Concomitant]
     Active Substance: CARBAMAZEPINE
     Indication: PRODUCT USED FOR UNKNOWN INDICATION
     Dosage: 600 MILLIGRAM / 1.5 TABLET
     Route: 048
  3. CLOZAPINE. [Suspect]
     Active Substance: CLOZAPINE
     Indication: PRODUCT USED FOR UNKNOWN INDICATION
     Dosage: 25 MG
     Route: 065
  4. DUODOPA [Suspect]
     Active Substance: CARBIDOPA\LEVODOPA
     Dosage: MD 8.0 ML; CD 2.2 ML/H; ED 1.0 ML
     Route: 050

REACTIONS (30)
  - Suspiciousness [Recovered/Resolved]
  - Device dislocation [Unknown]
  - Delusion [Recovered/Resolved]
  - Stoma site pain [Recovered/Resolved]
  - Medication error [Unknown]
  - Emotional disorder [Not Recovered/Not Resolved]
  - Aphasia [Not Recovered/Not Resolved]
  - Movement disorder [Unknown]
  - Confusional state [Unknown]
  - Bradykinesia [Not Recovered/Not Resolved]
  - Dyskinesia [Recovering/Resolving]
  - Disturbance in attention [Not Recovered/Not Resolved]
  - Middle insomnia [Not Recovered/Not Resolved]
  - Device issue [Unknown]
  - Hallucination [Recovered/Resolved]
  - Incoherent [Not Recovered/Not Resolved]
  - Muscle spasms [Not Recovered/Not Resolved]
  - Device issue [Not Recovered/Not Resolved]
  - Product administration error [Not Recovered/Not Resolved]
  - Judgement impaired [Not Recovered/Not Resolved]
  - Dyskinesia [Recovered/Resolved]
  - On and off phenomenon [Not Recovered/Not Resolved]
  - Cognitive disorder [Not Recovered/Not Resolved]
  - Abnormal dreams [Not Recovered/Not Resolved]
  - Tremor [Not Recovered/Not Resolved]
  - Memory impairment [Not Recovered/Not Resolved]
  - Depressed mood [Not Recovered/Not Resolved]
  - Stress [Not Recovered/Not Resolved]
  - Somnolence [Not Recovered/Not Resolved]
  - Device difficult to use [Unknown]

NARRATIVE: CASE EVENT DATE: 2020
